FAERS Safety Report 9324697 (Version 1)
Quarter: 2013Q2

REPORT INFORMATION
  Report Type: Spontaneous
  Country: FR (occurrence: FR)
  Receive Date: 20130603
  Receipt Date: 20130603
  Transmission Date: 20140414
  Serious: Yes (Hospitalization)
  Sender: FDA-Public Use
  Company Number: FR-GLAXOSMITHKLINE-B0894969A

PATIENT
  Age: 79 Year
  Sex: Female

DRUGS (8)
  1. ZELITREX [Suspect]
     Indication: PROPHYLAXIS
     Dosage: 500MG TWICE PER DAY
     Route: 048
     Dates: start: 20130211, end: 20130327
  2. BACTRIM [Suspect]
     Indication: PROPHYLAXIS
     Route: 048
     Dates: start: 20130211, end: 20130327
  3. LEDERFOLINE [Suspect]
     Indication: VITAMIN SUPPLEMENTATION
     Dosage: 25MG WEEKLY
     Dates: start: 20130211, end: 20130327
  4. RITUXIMAB [Concomitant]
     Indication: NON-HODGKIN^S LYMPHOMA
  5. CYCLOPHOSPHAMIDE [Concomitant]
  6. DOXORUBICIN [Concomitant]
  7. VINCRISTINE [Concomitant]
  8. PREDNISONE [Concomitant]

REACTIONS (3)
  - Hepatitis acute [Recovered/Resolved]
  - Hepatocellular injury [Recovered/Resolved]
  - Cholestasis [Recovered/Resolved]
